FAERS Safety Report 15936477 (Version 1)
Quarter: 2019Q1

REPORT INFORMATION
  Report Type: Spontaneous
  Country: US (occurrence: US)
  Receive Date: 20190208
  Receipt Date: 20190208
  Transmission Date: 20190417
  Serious: Yes (Hospitalization, Other)
  Sender: FDA-Public Use
  Company Number: US-APOTEX-2019AP007303

PATIENT
  Age: 55 Year
  Sex: Male

DRUGS (3)
  1. BUPROPION. [Suspect]
     Active Substance: BUPROPION
     Indication: DEPRESSED MOOD
     Dosage: UNK
     Route: 065
  2. BUPROPION. [Suspect]
     Active Substance: BUPROPION
     Indication: ANTIDEPRESSANT THERAPY
  3. SERTRALINE [Concomitant]
     Active Substance: SERTRALINE HYDROCHLORIDE
     Indication: MAJOR DEPRESSION
     Route: 065

REACTIONS (2)
  - Bipolar I disorder [Recovered/Resolved]
  - Drug ineffective [Unknown]
